FAERS Safety Report 6601175-6 (Version None)
Quarter: 2010Q1

REPORT INFORMATION
  Report Type: 
  Country: None (occurrence: None)
  Receive Date: 20100224
  Receipt Date: 20100224
  Transmission Date: 20100710
  Serious: No
  Sender: FDA-Public Use
  Company Number: None

PATIENT
  Age: 74 Year
  Sex: Female
  Weight: 54.8852 kg

DRUGS (2)
  1. BIAXIN XL [Suspect]
     Indication: COUGH
     Dosage: 2 TABLETS IN MORNING
     Dates: start: 20100125
  2. BIAXIN XL [Suspect]
     Indication: SINUS DISORDER
     Dosage: 2 TABLETS IN MORNING
     Dates: start: 20100125

REACTIONS (7)
  - DYSGEUSIA [None]
  - FATIGUE [None]
  - HALLUCINATION [None]
  - HEADACHE [None]
  - INITIAL INSOMNIA [None]
  - LABYRINTHITIS [None]
  - NIGHTMARE [None]
